FAERS Safety Report 17064110 (Version 1)
Quarter: 2019Q4

REPORT INFORMATION
  Report Type: Spontaneous
  Country: US (occurrence: US)
  Receive Date: 20191023
  Receipt Date: 20191023
  Transmission Date: 20200122
  Serious: Yes (Other)
  Sender: FDA-Public Use
  Company Number: None

PATIENT
  Age: 73 Year
  Sex: Female
  Weight: 80.74 kg

DRUGS (8)
  1. OMEPRAZOLE DR [Concomitant]
     Active Substance: OMEPRAZOLE
  2. CALCIUM 5MG 4X A WEEK [Concomitant]
  3. NATURE^S BOUNTY FISH OIL [Concomitant]
  4. VENLAFAXINE SUSTAINED RELEASE NAME  FOR EFFEXOR XR HCL ER CAP 75MG [Suspect]
     Active Substance: VENLAFAXINE HYDROCHLORIDE
     Indication: ANXIETY
     Dosage: ?          QUANTITY:1 DF DOSAGE FORM;?
     Route: 048
  5. NATURE MADE PRENATAL MUTI-VITAMIN [Concomitant]
  6. VENLAFAXINE HYDROCHLORIDE. [Suspect]
     Active Substance: VENLAFAXINE HYDROCHLORIDE
     Indication: CRYING
  7. ROSUVASTATIN. [Concomitant]
     Active Substance: ROSUVASTATIN
  8. RANITIDINE. [Concomitant]
     Active Substance: RANITIDINE

REACTIONS (8)
  - Dry mouth [None]
  - Dizziness [None]
  - Hyperhidrosis [None]
  - Yawning [None]
  - Vision blurred [None]
  - Irritability [None]
  - Insomnia [None]
  - Constipation [None]

NARRATIVE: CASE EVENT DATE: 20100910
